FAERS Safety Report 12712122 (Version 3)
Quarter: 2016Q4

REPORT INFORMATION
  Report Type: Spontaneous
  Country: IT (occurrence: IT)
  Receive Date: 20160902
  Receipt Date: 20161208
  Transmission Date: 20170207
  Serious: Yes (Other)
  Sender: FDA-Public Use
  Company Number: IT-PFIZER INC-2016412515

PATIENT
  Age: 56 Year
  Sex: Male
  Weight: 64 kg

DRUGS (3)
  1. VFEND [Suspect]
     Active Substance: VORICONAZOLE
     Indication: ASPERGILLUS INFECTION
     Dosage: 500 MG, DAILY
     Route: 042
     Dates: start: 20160819, end: 20160819
  2. LINEZOLID. [Concomitant]
     Active Substance: LINEZOLID
     Indication: SEPTIC SHOCK
     Dosage: 1200 MG, UNK
     Route: 042
     Dates: start: 20160817, end: 20160829
  3. MEROPENEM. [Concomitant]
     Active Substance: MEROPENEM
     Indication: SEPTIC SHOCK
     Dosage: 3 G, UNK
     Route: 042
     Dates: start: 20160816, end: 20160829

REACTIONS (2)
  - Lip oedema [Recovered/Resolved]
  - Skin mass [Recovered/Resolved]

NARRATIVE: CASE EVENT DATE: 20160819
